FAERS Safety Report 23762734 (Version 2)
Quarter: 2024Q2

REPORT INFORMATION
  Report Type: Other
  Country: TR (occurrence: TR)
  Receive Date: 20240419
  Receipt Date: 20240429
  Transmission Date: 20240716
  Serious: Yes (Hospitalization, Other)
  Sender: FDA-Public Use
  Company Number: TR-DENTSPLY-2024SCDP000107

PATIENT
  Age: 18 Year
  Sex: Female
  Weight: 50 kg

DRUGS (1)
  1. LIDOCAINE HYDROCHLORIDE AND EPINEPHRINE BITARTRATE [Suspect]
     Active Substance: EPINEPHRINE BITARTRATE\LIDOCAINE HYDROCHLORIDE
     Indication: Local anaesthesia
     Dosage: 48 MG TOTAL 20 MG/ML LIDOCAINE AND 0.03 MG TOTAL (CUMULATIVE DOSE) 0.0125 MG/ML EPINEPHRINE INJECTIO

REACTIONS (2)
  - Stress cardiomyopathy [Recovered/Resolved]
  - Circulatory collapse [Recovered/Resolved]
